FAERS Safety Report 6481790-3 (Version None)
Quarter: 2009Q4

REPORT INFORMATION
  Report Type: 
  Country: None (occurrence: None)
  Receive Date: 20091208
  Receipt Date: 20091202
  Transmission Date: 20100525
  Serious: Yes (Hospitalization)
  Sender: FDA-Public Use
  Company Number: NL-MERCK-0912NLD00005

PATIENT
  Age: 33 Year
  Sex: Female

DRUGS (5)
  1. MAXALT [Suspect]
     Route: 048
  2. FLUOXETINE HYDROCHLORIDE [Suspect]
     Route: 048
     Dates: start: 20090623
  3. ZOPICLONE [Concomitant]
     Route: 048
     Dates: start: 20090824
  4. OXAZEPAM [Concomitant]
     Route: 048
  5. CYPROTERONE ACETATE AND ETHINYL ESTRADIOL [Concomitant]
     Route: 065

REACTIONS (2)
  - DRUG INTERACTION [None]
  - SEROTONIN SYNDROME [None]
